FAERS Safety Report 19635029 (Version 3)
Quarter: 2021Q3

REPORT INFORMATION
  Report Type: Spontaneous
  Country: IT (occurrence: IT)
  Receive Date: 20210730
  Receipt Date: 20210804
  Transmission Date: 20211014
  Serious: Yes (Other)
  Sender: FDA-Public Use
  Company Number: IT-PFIZER INC-202100913708

PATIENT
  Age: 68 Year
  Sex: Male

DRUGS (8)
  1. AMLODIPINE BESILATE [Suspect]
     Active Substance: AMLODIPINE BESYLATE
     Dosage: 10 MG
  2. VALPROIC ACID. [Suspect]
     Active Substance: VALPROIC ACID
     Dosage: 500 MG
  3. ACETYLSALICYLIC ACID [Suspect]
     Active Substance: ASPIRIN
     Dosage: UNK
  4. LITHIUM CARBONATE. [Suspect]
     Active Substance: LITHIUM CARBONATE
     Dosage: 300 UG
  5. DUTASTERIDE. [Suspect]
     Active Substance: DUTASTERIDE
     Dosage: 0.5 MG
  6. ATORVASTATIN CALCIUM. [Suspect]
     Active Substance: ATORVASTATIN CALCIUM
     Dosage: 40 MG
  7. ZOFENOPRIL [Suspect]
     Active Substance: ZOFENOPRIL
     Dosage: 30 MG
  8. ALFUZOSIN [Suspect]
     Active Substance: ALFUZOSIN
     Dosage: 10 MG

REACTIONS (3)
  - Inferior vena cava dilatation [Recovering/Resolving]
  - Dyspnoea exertional [Unknown]
  - Pulmonary interstitial emphysema syndrome [Recovering/Resolving]
